FAERS Safety Report 21006592 (Version 1)
Quarter: 2022Q2

REPORT INFORMATION
  Report Type: Report from Study
  Country: US (occurrence: US)
  Receive Date: 20220624
  Receipt Date: 20220624
  Transmission Date: 20220721
  Serious: Yes (Other)
  Sender: FDA-Public Use
  Company Number: US-ABBVIE-22K-163-4439914-00

PATIENT
  Sex: Female

DRUGS (3)
  1. HUMIRA [Suspect]
     Active Substance: ADALIMUMAB
     Indication: Crohn^s disease
     Dosage: CITRATE FREE
     Route: 058
  2. HUMIRA [Suspect]
     Active Substance: ADALIMUMAB
     Indication: Psoriatic arthropathy
  3. PFIZER-BIONTECH COVID-19 VACCINE [Concomitant]
     Active Substance: TOZINAMERAN
     Indication: COVID-19 immunisation
     Route: 030

REACTIONS (9)
  - Suicidal ideation [Unknown]
  - Skin discolouration [Unknown]
  - Balance disorder [Unknown]
  - Chondropathy [Unknown]
  - Substance use [Unknown]
  - Skin exfoliation [Unknown]
  - Arthropathy [Unknown]
  - Arthritis [Not Recovered/Not Resolved]
  - Fall [Unknown]
